FAERS Safety Report 9188460 (Version 1)
Quarter: 2012Q4

REPORT INFORMATION
  Report Type: 
  Country: DE (occurrence: DE)
  Receive Date: 20121205
  Receipt Date: 20121205
  Transmission Date: 20130627
  Serious: Yes (Other)
  Sender: FDA-Public Use
  Company Number: PHHY2012DE109920

PATIENT
  Age: 41 Year
  Sex: Male

DRUGS (4)
  1. FLUDARABINE [Suspect]
     Indication: B-CELL LYMPHOMA
  2. RITUXIMAB [Suspect]
     Indication: B-CELL LYMPHOMA
  3. CYCLOPHOSPHAMIDE [Suspect]
     Indication: B-CELL LYMPHOMA
  4. BENDAMUSTINE [Suspect]
     Indication: B-CELL LYMPHOMA

REACTIONS (2)
  - Myelodysplastic syndrome [Recovered/Resolved]
  - Acute myeloid leukaemia [Recovered/Resolved]
